FAERS Safety Report 12999556 (Version 1)
Quarter: 2016Q4

REPORT INFORMATION
  Report Type: Report from Study
  Country: None (occurrence: US)
  Receive Date: 20161205
  Receipt Date: 20161205
  Transmission Date: 20170207
  Serious: Yes (Death, Hospitalization, Other)
  Sender: FDA-Public Use
  Company Number: US-ABBVIE-16K-163-1798506-00

PATIENT
  Age: 74 Year
  Sex: Female
  Weight: 60.84 kg

DRUGS (1)
  1. HUMIRA [Suspect]
     Active Substance: ADALIMUMAB
     Indication: CROHN^S DISEASE
     Route: 058
     Dates: end: 20160906

REACTIONS (11)
  - Colitis [Recovered/Resolved]
  - Weight increased [Unknown]
  - Gastrointestinal haemorrhage [Recovered/Resolved]
  - Epistaxis [Recovered/Resolved]
  - Malignant neoplasm of ampulla of Vater [Not Recovered/Not Resolved]
  - Metastatic neoplasm [Fatal]
  - Abdominal distension [Not Recovered/Not Resolved]
  - Abdominal pain [Not Recovered/Not Resolved]
  - Fluid retention [Not Recovered/Not Resolved]
  - Pancreatic enzymes increased [Unknown]
  - Gastrointestinal haemorrhage [Recovered/Resolved]

NARRATIVE: CASE EVENT DATE: 2016
